FAERS Safety Report 18791081 (Version 1)
Quarter: 2021Q1

REPORT INFORMATION
  Report Type: Spontaneous
  Country: US (occurrence: US)
  Receive Date: 20210126
  Receipt Date: 20210126
  Transmission Date: 20210419
  Serious: Yes (Other)
  Sender: FDA-Public Use
  Company Number: US-HIKMA PHARMACEUTICALS USA INC.-US-H14001-21-00269

PATIENT
  Age: 42 Year
  Sex: Male

DRUGS (1)
  1. PREDNISONE. [Suspect]
     Active Substance: PREDNISONE
     Indication: EOSINOPHILIC GRANULOMATOSIS WITH POLYANGIITIS
     Dosage: UNKNOWN
     Route: 065

REACTIONS (4)
  - Inflammation masked [Recovered/Resolved]
  - Immunoglobulin G4 related disease [Recovered/Resolved]
  - Cholangitis [Recovered/Resolved]
  - Pancreatitis [Recovered/Resolved]
